FAERS Safety Report 7473389-7 (Version None)
Quarter: 2011Q2

REPORT INFORMATION
  Report Type: 
  Country: None (occurrence: None)
  Receive Date: 20110511
  Receipt Date: 20110506
  Transmission Date: 20111010
  Serious: Yes (Other)
  Sender: FDA-Public Use
  Company Number: DE-ROCHE-775817

PATIENT
  Sex: Female
  Weight: 60 kg

DRUGS (3)
  1. HERCEPTIN [Suspect]
     Indication: BREAST CANCER
     Dosage: NEOADJUVANT THERAPY
     Route: 042
     Dates: start: 20101014
  2. FERINJECT [Concomitant]
     Indication: IRON DEFICIENCY ANAEMIA
     Dosage: APPLICATION ON 7 APR 2011
  3. FENISTIL (DIMETINDENE) [Concomitant]
     Indication: PREMEDICATION
     Route: 042
     Dates: start: 20101014

REACTIONS (1)
  - ALOPECIA [None]
